FAERS Safety Report 12217261 (Version 2)
Quarter: 2016Q2

REPORT INFORMATION
  Report Type: Spontaneous
  Country: FR (occurrence: FR)
  Receive Date: 20160329
  Receipt Date: 20160407
  Transmission Date: 20160815
  Serious: Yes (Hospitalization)
  Sender: FDA-Public Use
  Company Number: FR-JNJFOC-20160319344

PATIENT
  Age: 88 Year
  Sex: Male

DRUGS (5)
  1. ZYTIGA [Suspect]
     Active Substance: ABIRATERONE ACETATE
     Indication: PROSTATE CANCER
     Route: 048
     Dates: start: 20151029, end: 20160229
  2. PARACETAMOL [Concomitant]
     Active Substance: ACETAMINOPHEN
     Route: 065
  3. NEBILOX [Concomitant]
     Active Substance: NEBIVOLOL HYDROCHLORIDE
     Route: 065
  4. ARNICA MONTANA. [Concomitant]
     Active Substance: ARNICA MONTANA
     Route: 065
  5. AMLODIPINE [Concomitant]
     Active Substance: AMLODIPINE BESYLATE
     Route: 065

REACTIONS (2)
  - Acute pulmonary oedema [Recovered/Resolved]
  - Hypertensive heart disease [Recovered/Resolved]

NARRATIVE: CASE EVENT DATE: 20160229
